FAERS Safety Report 5157888-9 (Version None)
Quarter: 2006Q4

REPORT INFORMATION
  Report Type: 
  Country: None (occurrence: None)
  Receive Date: 20061120
  Receipt Date: 20061120
  Transmission Date: 20070319
  Serious: Yes (Hospitalization)
  Sender: FDA-Public Use
  Company Number: None

PATIENT
  Age: 74 Year
  Sex: Female

DRUGS (17)
  1. LEXAPRO [Suspect]
     Indication: DEPRESSION
     Dosage: 10 MG DAILY PO
     Route: 048
  2. ULTRACET -TRAMADOL [Suspect]
     Indication: ARTHRITIS
     Dosage: 2 TABS Q4 PRN PO
     Route: 048
  3. DARVOCET [Concomitant]
  4. ZETIA [Concomitant]
  5. BENICAR [Concomitant]
  6. AMITRYPTYLINE [Concomitant]
  7. SYNTHROID [Concomitant]
  8. COMBIVENT [Concomitant]
  9. FLOVENT [Concomitant]
  10. CLONAZEPAM [Concomitant]
  11. NEXIUM [Concomitant]
  12. SUCRALFATE [Concomitant]
  13. HYDROCHLOROTHIAZIDE [Concomitant]
  14. TOPAMAX [Concomitant]
  15. LIQUID IRON [Concomitant]
  16. GLUCOSAMINE [Concomitant]
  17. CHONDROITIN [Concomitant]

REACTIONS (1)
  - SEROTONIN SYNDROME [None]
